FAERS Safety Report 19670449 (Version 9)
Quarter: 2022Q1

REPORT INFORMATION
  Report Type: Report from Study
  Country: IT (occurrence: IT)
  Receive Date: 20210806
  Receipt Date: 20220308
  Transmission Date: 20220423
  Serious: Yes (Hospitalization)
  Sender: FDA-Public Use
  Company Number: NVSC2021IT174086

PATIENT
  Age: 49 Year
  Sex: Female
  Weight: 50 kg

DRUGS (6)
  1. ISCALIMAB [Suspect]
     Active Substance: ISCALIMAB
     Indication: Liver transplant
     Dosage: 1560 MG ONCE
     Route: 058
     Dates: start: 20210622, end: 20210727
  2. TACROLIMUS [Suspect]
     Active Substance: TACROLIMUS
     Indication: Liver transplant
     Dosage: 5 MG DAILY
     Route: 048
     Dates: start: 20210622
  3. PREDNISONE [Concomitant]
     Active Substance: PREDNISONE
     Indication: Prophylaxis against transplant rejection
     Dosage: UNK
     Route: 065
     Dates: start: 20210618
  4. PANTOPRAZOLE SODIUM [Concomitant]
     Active Substance: PANTOPRAZOLE SODIUM
     Indication: General physical condition
     Dosage: UNK
     Route: 065
     Dates: start: 20210614
  5. BACTRIM [Concomitant]
     Active Substance: SULFAMETHOXAZOLE\TRIMETHOPRIM
     Indication: General physical condition
     Dosage: UNK
     Route: 065
     Dates: start: 20210615
  6. PANTOPRAZOLE [Concomitant]
     Active Substance: PANTOPRAZOLE
     Indication: Gastritis
     Dosage: UNK
     Route: 065
     Dates: start: 2021

REACTIONS (1)
  - Liver transplant rejection [Recovered/Resolved]

NARRATIVE: CASE EVENT DATE: 20210723
